FAERS Safety Report 25367607 (Version 1)
Quarter: 2025Q2

REPORT INFORMATION
  Report Type: Spontaneous
  Country: US (occurrence: US)
  Receive Date: 20250528
  Receipt Date: 20250528
  Transmission Date: 20250717
  Serious: No
  Sender: AMGEN
  Company Number: US-AMGEN-USASP2025101613

PATIENT
  Sex: Male

DRUGS (2)
  1. REPATHA [Suspect]
     Active Substance: EVOLOCUMAB
     Indication: Product used for unknown indication
     Dosage: UNK UNK, Q2WK
     Route: 065
     Dates: start: 2024, end: 20250508
  2. ZETIA [Concomitant]
     Active Substance: EZETIMIBE

REACTIONS (6)
  - Hypophagia [Unknown]
  - Burning sensation [Unknown]
  - Infrequent bowel movements [Unknown]
  - Pruritus [Unknown]
  - Therapeutic product effect decreased [Unknown]
  - Injection site pain [Unknown]
